FAERS Safety Report 22146661 (Version 1)
Quarter: 2023Q1

REPORT INFORMATION
  Report Type: Spontaneous
  Country: US (occurrence: US)
  Receive Date: 20230328
  Receipt Date: 20230328
  Transmission Date: 20230418
  Serious: Yes (Other)
  Sender: FDA-Public Use
  Company Number: US-SA-SAC20230327000962

PATIENT
  Age: 63 Year
  Sex: Female

DRUGS (1)
  1. DUPIXENT [Suspect]
     Active Substance: DUPILUMAB
     Dosage: 300 MG, QOW
     Route: 058
     Dates: start: 20230210

REACTIONS (5)
  - Osteomyelitis [Not Recovered/Not Resolved]
  - Illness [Not Recovered/Not Resolved]
  - Immune system disorder [Unknown]
  - Nasopharyngitis [Not Recovered/Not Resolved]
  - Rash macular [Not Recovered/Not Resolved]
